FAERS Safety Report 11808268 (Version 1)
Quarter: 2015Q4

REPORT INFORMATION
  Report Type: Spontaneous
  Country: FR (occurrence: FR)
  Receive Date: 20151207
  Receipt Date: 20151207
  Transmission Date: 20160305
  Serious: Yes (Hospitalization)
  Sender: FDA-Public Use
  Company Number: FR-GE HEALTHCARE MEDICAL DIAGNOSTICS-VISP-PR-1512S-0478

PATIENT
  Age: 57 Year
  Sex: Male

DRUGS (10)
  1. BISOPROLOL [Concomitant]
     Active Substance: BISOPROLOL
  2. TAHOR [Concomitant]
     Active Substance: ATORVASTATIN CALCIUM
  3. DIFFU-K [Concomitant]
     Active Substance: POTASSIUM CHLORIDE
  4. KARDEGIC [Concomitant]
     Active Substance: ASPIRIN LYSINE
  5. VISIPAQUE [Suspect]
     Active Substance: IODIXANOL
     Indication: ACUTE CORONARY SYNDROME
     Dosage: DOSE NOT REPORTED
     Route: 013
     Dates: start: 20151007, end: 20151007
  6. PERINDOPRIL [Concomitant]
     Active Substance: PERINDOPRIL
  7. VISIPAQUE [Suspect]
     Active Substance: IODIXANOL
     Indication: DIAGNOSTIC PROCEDURE
     Dosage: DOSE NOT REPORTED
     Route: 013
     Dates: start: 20151010, end: 20151010
  8. CALCIPARINE [Concomitant]
     Active Substance: HEPARIN CALCIUM
  9. TICAGRELOR [Concomitant]
     Active Substance: TICAGRELOR
  10. INSULIN [Concomitant]
     Active Substance: INSULIN NOS

REACTIONS (3)
  - Anuria [Recovered/Resolved]
  - Acute kidney injury [Recovering/Resolving]
  - Hyperkalaemia [Recovered/Resolved]

NARRATIVE: CASE EVENT DATE: 20151010
